FAERS Safety Report 7416543-2 (Version None)
Quarter: 2011Q2

REPORT INFORMATION
  Report Type: 
  Country: None (occurrence: None)
  Receive Date: 20110414
  Receipt Date: 20110409
  Transmission Date: 20111010
  Serious: Yes (Hospitalization)
  Sender: FDA-Public Use
  Company Number: US-BRISTOL-MYERS SQUIBB COMPANY-15664550

PATIENT
  Age: 61 Year
  Sex: Female
  Weight: 113 kg

DRUGS (3)
  1. CARBOPLATIN [Suspect]
     Indication: ENDOMETRIAL CANCER
     Dosage: LAST DOSE ON 04FEB2011 COURSES:2
     Route: 042
     Dates: start: 20101221
  2. IXEMPRA KIT [Suspect]
     Indication: ENDOMETRIAL CANCER
     Dosage: LAST DOSE ON 04FEB2011 COURSES:2
     Route: 042
     Dates: start: 20101221
  3. RHUMAB-VEGF [Suspect]
     Indication: ENDOMETRIAL CANCER
     Dosage: LAST DOSE ON 04FEB2011, COURSES:2
     Route: 042
     Dates: start: 20101221

REACTIONS (10)
  - PLATELET DISORDER [None]
  - HYPONATRAEMIA [None]
  - NEUTROPHIL COUNT DECREASED [None]
  - SPEECH DISORDER [None]
  - URINARY TRACT INFECTION [None]
  - NAUSEA [None]
  - HAEMOGLOBIN ABNORMAL [None]
  - WHITE BLOOD CELL DISORDER [None]
  - VISION BLURRED [None]
  - HEADACHE [None]
